FAERS Safety Report 5528056-3 (Version None)
Quarter: 2007Q4

REPORT INFORMATION
  Report Type: 
  Country: None (occurrence: None)
  Receive Date: 20071128
  Receipt Date: 20071119
  Transmission Date: 20080405
  Serious: Yes (Hospitalization)
  Sender: FDA-Public Use
  Company Number: US-BRISTOL-MYERS SQUIBB COMPANY-13986989

PATIENT
  Age: 75 Year
  Sex: Male
  Weight: 72 kg

DRUGS (4)
  1. CETUXIMAB [Suspect]
     Indication: NON-SMALL CELL LUNG CANCER
     Dosage: CYCLE 1 400MG/M2 IV, 250MG/M2
     Route: 042
     Dates: start: 20070913, end: 20070913
  2. CARBOPLATIN [Suspect]
     Indication: NON-SMALL CELL LUNG CANCER
     Dosage: AUC6 IV
     Route: 042
     Dates: start: 20070906, end: 20070906
  3. PACLITAXEL [Suspect]
     Indication: NON-SMALL CELL LUNG CANCER
     Dosage: START DOSE 200MG/M2 IV
     Route: 042
     Dates: start: 20070906, end: 20070906
  4. BEVACIZUMAB [Suspect]
     Indication: NON-SMALL CELL LUNG CANCER
     Dosage: HELD DUE TO PREVIOUS HEMOPTYSIS. START DOSE 15MG/KG IV, Q21 DAYS.
     Dates: end: 20070816

REACTIONS (2)
  - PLEURAL EFFUSION [None]
  - PNEUMONIA [None]
